FAERS Safety Report 8922572 (Version 2)
Quarter: 2012Q4

REPORT INFORMATION
  Report Type: 
  Country: FI (occurrence: FI)
  Receive Date: 20121123
  Receipt Date: 20121129
  Transmission Date: 20130627
  Serious: Yes (Life-Threatening, Hospitalization, Other)
  Sender: FDA-Public Use
  Company Number: PHHY2012FI107079

PATIENT
  Age: 21 Year
  Sex: Male
  Weight: 113 kg

DRUGS (3)
  1. LEPONEX [Suspect]
     Indication: SCHIZOPHRENIA
     Dosage: 300 mg, UNK
     Dates: start: 20120315
  2. LEPONEX [Suspect]
     Dosage: 200 mg, QD
     Dates: start: 2012, end: 201211
  3. VENLAFAXIN [Concomitant]
     Dosage: 150 mg, UNK
     Dates: start: 201203

REACTIONS (9)
  - Pancreatitis [Unknown]
  - Ketoacidosis [Unknown]
  - Aggression [Unknown]
  - Anger [Unknown]
  - Hepatic steatosis [Unknown]
  - Diabetes mellitus [Unknown]
  - Weight increased [Unknown]
  - Delusion [Unknown]
  - Sedation [Unknown]
